FAERS Safety Report 15839904 (Version 1)
Quarter: 2019Q1

REPORT INFORMATION
  Report Type: Spontaneous
  Country: US (occurrence: US)
  Receive Date: 20190117
  Receipt Date: 20190117
  Transmission Date: 20190417
  Serious: No
  Sender: FDA-Public Use
  Company Number: US-GLAXOSMITHKLINE-US2019003475

PATIENT
  Sex: Female

DRUGS (1)
  1. BENLYSTA [Suspect]
     Active Substance: BELIMUMAB
     Indication: PRODUCT USED FOR UNKNOWN INDICATION
     Dosage: 200 MG, WE
     Route: 058
     Dates: start: 201807

REACTIONS (7)
  - Weight increased [Unknown]
  - Drug effect decreased [Unknown]
  - Cognitive disorder [Unknown]
  - Arthralgia [Unknown]
  - Asthenia [Unknown]
  - Feeling abnormal [Unknown]
  - Device difficult to use [Unknown]

NARRATIVE: CASE EVENT DATE: 201807
